FAERS Safety Report 4276618-6 (Version None)
Quarter: 2004Q1

REPORT INFORMATION
  Report Type: 
  Country: None (occurrence: None)
  Receive Date: 20040120
  Receipt Date: 20040115
  Transmission Date: 20041129
  Serious: Yes (Death)
  Sender: FDA-Public Use
  Company Number: US-JNJFOC-20031102832

PATIENT
  Age: 85 Year
  Sex: Male

DRUGS (8)
  1. DURAGESIC [Suspect]
     Indication: CANCER PAIN
     Dosage: 75 UG/HR, 1 IN 72 HOUR, TRANSDERMAL
     Route: 062
     Dates: start: 20020701, end: 20031001
  2. NIZORAL [Concomitant]
  3. OXYBUTIN (OXYBUTYNIN HYDROCHLORIDE) UNSPECIFIED [Concomitant]
  4. SYNTHROID [Concomitant]
  5. ZOLOFT [Concomitant]
  6. PEROCET (OXYCOCET) [Concomitant]
  7. LEUPRON (LEUPRORELIN ACETATE) [Concomitant]
  8. ZOMETA [Concomitant]

REACTIONS (1)
  - METASTASES TO BONE [None]
